FAERS Safety Report 5734495-8 (Version None)
Quarter: 2008Q2

REPORT INFORMATION
  Report Type: 
  Country: None (occurrence: None)
  Receive Date: 20080512
  Receipt Date: 20080502
  Transmission Date: 20081010
  Serious: Yes (Hospitalization)
  Sender: FDA-Public Use
  Company Number: AU-ASTRAZENECA-2008AP03448

PATIENT
  Age: 23984 Day
  Sex: Male
  Weight: 68 kg

DRUGS (4)
  1. PROPOFOL [Suspect]
     Route: 042
     Dates: start: 20070803, end: 20070803
  2. FENTANYL [Suspect]
     Dates: start: 20070803, end: 20070803
  3. CEPHALOTHIN SODIUM [Suspect]
     Dates: start: 20070803, end: 20070803
  4. MIDAZOLAM HCL [Suspect]
     Dates: start: 20070803, end: 20070803

REACTIONS (3)
  - AGGRESSION [None]
  - AGITATION [None]
  - DISORIENTATION [None]
